FAERS Safety Report 8775524 (Version 3)
Quarter: 2012Q4

REPORT INFORMATION
  Report Type: 
  Country: RU (occurrence: RU)
  Receive Date: 20120911
  Receipt Date: 20121119
  Transmission Date: 20130627
  Serious: Yes (Hospitalization)
  Sender: FDA-Public Use
  Company Number: RU-ABBOTT-12P-251-0976977-00

PATIENT
  Age: 2 Year
  Sex: Male
  Weight: 11 kg

DRUGS (1)
  1. KLACID [Suspect]
     Indication: TONSILLITIS
     Route: 048
     Dates: start: 20120112, end: 20120117

REACTIONS (1)
  - Carditis [Recovering/Resolving]
